FAERS Safety Report 4748520-4 (Version None)
Quarter: 2005Q3

REPORT INFORMATION
  Report Type: 
  Country: None (occurrence: None)
  Receive Date: 20050818
  Receipt Date: 20050818
  Transmission Date: 20060218
  Serious: Yes (Life-Threatening, Hospitalization)
  Sender: FDA-Public Use
  Company Number: None

PATIENT
  Age: 86 Year
  Sex: Female
  Weight: 52 kg

DRUGS (1)
  1. GADOBENATE DIMEGLUMINE [Suspect]
     Indication: DIAGNOSTIC PROCEDURE
     Dosage: ONCE  INTRAVENOU
     Route: 042
     Dates: start: 20050401

REACTIONS (7)
  - BLOOD PRESSURE DECREASED [None]
  - BURNING SENSATION [None]
  - CARDIO-RESPIRATORY ARREST [None]
  - DEVICE FAILURE [None]
  - DYSPNOEA [None]
  - LOSS OF CONSCIOUSNESS [None]
  - PALPITATIONS [None]
